FAERS Safety Report 6566003-6 (Version None)
Quarter: 2010Q1

REPORT INFORMATION
  Report Type: 
  Country: None (occurrence: None)
  Receive Date: 20100129
  Receipt Date: 20100129
  Transmission Date: 20100710
  Serious: Yes (Other)
  Sender: FDA-Public Use
  Company Number: None

PATIENT
  Age: 9 Year
  Sex: Male
  Weight: 23.587 kg

DRUGS (1)
  1. ABILIFY [Suspect]
     Indication: AUTISM
     Dosage: 5 MG ONCE A DAY PO
     Route: 048
     Dates: start: 20100101, end: 20100110

REACTIONS (1)
  - TREMOR [None]
